FAERS Safety Report 7258330-4 (Version None)
Quarter: 2011Q1

REPORT INFORMATION
  Report Type: 
  Country: None (occurrence: None)
  Receive Date: 20110129
  Receipt Date: 20100706
  Transmission Date: 20110831
  Serious: No
  Sender: FDA-Public Use
  Company Number: US-ABBOTT-10P-163-0656217-00

PATIENT
  Sex: Female
  Weight: 54.48 kg

DRUGS (4)
  1. HUMIRA [Suspect]
     Indication: PSORIATIC ARTHROPATHY
     Route: 058
  2. NECON [Concomitant]
     Indication: CONTRACEPTION
  3. HUMIRA [Suspect]
     Indication: PSORIASIS
  4. CLOBETASOL [Concomitant]
     Indication: PSORIASIS
     Dosage: TOPICAL OIL
     Route: 061

REACTIONS (2)
  - INJECTION SITE PAPULE [None]
  - INJECTION SITE ERYTHEMA [None]
